FAERS Safety Report 10190677 (Version 3)
Quarter: 2014Q2

REPORT INFORMATION
  Report Type: Report from Study
  Country: US (occurrence: US)
  Receive Date: 20140523
  Receipt Date: 20140605
  Transmission Date: 20141212
  Serious: Yes (Other)
  Sender: FDA-Public Use
  Company Number: US-BIOGENIDEC-2014BI036639

PATIENT
  Age: 47 Year
  Sex: Female
  Weight: 89 kg

DRUGS (8)
  1. AVONEX [Suspect]
     Indication: MULTIPLE SCLEROSIS
     Route: 030
     Dates: start: 20090609, end: 20140226
  2. CALCIUM CARBONATE [Concomitant]
     Route: 048
  3. CYANOCOBALAMIN [Concomitant]
     Route: 048
  4. CYCLOBENZAPINE [Concomitant]
     Route: 048
  5. ESOMEPRAZOLE MAGNESIUM [Concomitant]
     Route: 048
  6. IBUPROFEN [Concomitant]
     Route: 048
  7. POLYETHYLENE GLYCOL [Concomitant]
     Route: 048
  8. ROSUVASTATIN [Concomitant]
     Route: 048

REACTIONS (5)
  - Arachnoid cyst [Unknown]
  - Gait disturbance [Not Recovered/Not Resolved]
  - Fall [Recovered/Resolved]
  - Lower limb fracture [Unknown]
  - Drug ineffective [Recovered/Resolved]
